FAERS Safety Report 10956873 (Version 3)
Quarter: 2015Q2

REPORT INFORMATION
  Report Type: Report from Study
  Country: GB (occurrence: None)
  Receive Date: 20150324
  Receipt Date: 20150610
  Transmission Date: 20150821
  Serious: Yes (Hospitalization, Other)
  Sender: FDA-Public Use
  Company Number: 2015SGN00396

PATIENT
  Age: 77 Year
  Sex: Male
  Weight: 74 kg

DRUGS (16)
  1. UNIVER (VERAPAMIL HYDROCHLORIDE) [Concomitant]
  2. ESOMEPRAZOLE [Concomitant]
     Active Substance: ESOMEPRAZOLE
  3. SALBUTAMOL [Concomitant]
     Active Substance: ALBUTEROL
  4. FLUCONAZOLE. [Concomitant]
     Active Substance: FLUCONAZOLE
  5. BRENTUXIMAB VEDOTIN [Suspect]
     Active Substance: BRENTUXIMAB VEDOTIN
     Indication: ANAPLASTIC LARGE-CELL LYMPHOMA
     Dosage: 140 MG, UNK, INTRAVENOUS
     Route: 042
     Dates: start: 20150225, end: 20150225
  6. FUROSEMID /00032601/ (FUROSEMIDE) [Concomitant]
  7. TAMSULOSIN [Concomitant]
     Active Substance: TAMSULOSIN
  8. ALLOPURINOL. [Concomitant]
     Active Substance: ALLOPURINOL
  9. COTRIMOXAZOLE [Concomitant]
     Active Substance: SULFAMETHOXAZOLE\TRIMETHOPRIM
  10. DOUBLEBASE (ISOPROPYL MYRISATE, PARAFFIN, LIQUID) [Concomitant]
  11. FLUDROCORTISONE [Concomitant]
     Active Substance: FLUDROCORTISONE
  12. ASPIRIN (ACETYLSALICYLIC ACID) [Concomitant]
     Active Substance: ASPIRIN
  13. DALTEPARIN [Concomitant]
     Active Substance: DALTEPARIN
  14. IPRATROPIUM [Concomitant]
     Active Substance: IPRATROPIUM
  15. EVOHALER (FLUTICASONE PROPIONATE, SALMETEROL XINAFOATE) [Concomitant]
  16. SENNA [Concomitant]
     Active Substance: SENNA LEAF\SENNOSIDES\SENNOSIDES A AND B

REACTIONS (3)
  - Ischaemic stroke [None]
  - Muscular weakness [None]
  - Upper respiratory tract infection [None]

NARRATIVE: CASE EVENT DATE: 20150308
